FAERS Safety Report 20217607 (Version 1)
Quarter: 2021Q4

REPORT INFORMATION
  Report Type: Spontaneous
  Country: US (occurrence: US)
  Receive Date: 20211222
  Receipt Date: 20211222
  Transmission Date: 20220303
  Serious: No
  Sender: FDA-Public Use
  Company Number: US-PFIZER INC-2020499982

PATIENT
  Age: 70 Year
  Sex: Female

DRUGS (4)
  1. EUCRISA [Suspect]
     Active Substance: CRISABOROLE
     Indication: Lentigo
     Dosage: 1X/DAY QHS (EVERY NIGHT AT BEDTIME) APPLY TO AA QHS
     Route: 061
  2. EUCRISA [Suspect]
     Active Substance: CRISABOROLE
     Indication: Actinic keratosis
     Dosage: UNK, 1X/DAY (APPLY TO AA QHS)
     Route: 061
  3. EUCRISA [Suspect]
     Active Substance: CRISABOROLE
     Indication: Eczema asteatotic
     Dosage: 1X/DAY (APPLY TO AA QHS)
     Route: 061
     Dates: start: 20201201
  4. TRIAMCINOLONE [Concomitant]
     Active Substance: TRIAMCINOLONE
     Dosage: UNK

REACTIONS (4)
  - Off label use [Unknown]
  - Off label use [Unknown]
  - Skin lesion [Unknown]
  - Melanocytic naevus [Unknown]
